FAERS Safety Report 7270690 (Version 3)
Quarter: 2013Q3

REPORT INFORMATION
  Report Type: Report from Study
  Country: DE (occurrence: DE)
  Receive Date: 20100204
  Receipt Date: 20130830
  Transmission Date: 20140515
  Serious: Yes (Death, Hospitalization)
  Sender: FDA-Public Use
  Company Number: DE-ROCHE-663982

PATIENT
  Age: 50 Year
  Sex: Male
  Weight: 53 kg

DRUGS (2)
  1. PEG-INTERFERON ALFA 2A [Suspect]
     Indication: CHRONIC HEPATITIS C
     Route: 058
     Dates: start: 20090731, end: 20091106
  2. RIBAVIRIN [Suspect]
     Indication: CHRONIC HEPATITIS C
     Route: 048
     Dates: start: 20090731, end: 20091106

REACTIONS (4)
  - Lymphoma [Fatal]
  - Cachexia [Fatal]
  - General physical health deterioration [Fatal]
  - Abdominal pain [Unknown]
